FAERS Safety Report 10528920 (Version 1)
Quarter: 2014Q4

REPORT INFORMATION
  Report Type: Spontaneous
  Country: DE (occurrence: DE)
  Receive Date: 20141020
  Receipt Date: 20141020
  Transmission Date: 20150528
  Serious: Yes (Hospitalization, Other)
  Sender: FDA-Public Use
  Company Number: DE-ABBVIE-14P-062-1295981-00

PATIENT
  Sex: Female

DRUGS (1)
  1. HUMIRA [Suspect]
     Active Substance: ADALIMUMAB
     Indication: MATERNAL EXPOSURE TIMING UNSPECIFIED
     Route: 064

REACTIONS (10)
  - Foetal growth restriction [Unknown]
  - Feeding disorder neonatal [Unknown]
  - Haemangioma [Unknown]
  - Breech presentation [Unknown]
  - Hyperbilirubinaemia [Unknown]
  - Low birth weight baby [Unknown]
  - Polycythaemia [Unknown]
  - Temperature regulation disorder [Unknown]
  - Small for dates baby [Unknown]
  - Foetal exposure during pregnancy [Unknown]

NARRATIVE: CASE EVENT DATE: 20130403
